FAERS Safety Report 4530335-3 (Version None)
Quarter: 2004Q4

REPORT INFORMATION
  Report Type: 
  Country: None (occurrence: None)
  Receive Date: 20041215
  Receipt Date: 20041203
  Transmission Date: 20050328
  Serious: Yes (Death)
  Sender: FDA-Public Use
  Company Number: 2004008271

PATIENT
  Age: 42 Year
  Sex: Male

DRUGS (4)
  1. BEGALIN-P (AMPICILLIN, SULBACTAM) [Suspect]
     Indication: UPPER RESPIRATORY TRACT INFECTION
     Dosage: 1.5 MG (3 IN 1 D), INTRAVENOUS
     Route: 042
     Dates: start: 20040206, end: 20040206
  2. ACETAMINOPHEN [Concomitant]
  3. DEXTROPROPOXYPHENE HYDROCHLORIDE (DEXTROPROPOXYPHENE HYDROCHLORIDE) [Concomitant]
  4. ASPIRIN [Concomitant]

REACTIONS (4)
  - ANAPHYLACTIC SHOCK [None]
  - INFUSION RELATED REACTION [None]
  - THROAT IRRITATION [None]
  - VENTRICULAR FIBRILLATION [None]
